FAERS Safety Report 14297563 (Version 5)
Quarter: 2018Q3

REPORT INFORMATION
  Report Type: Spontaneous
  Country: ES (occurrence: ES)
  Receive Date: 20171218
  Receipt Date: 20180714
  Transmission Date: 20181010
  Serious: Yes (Death)
  Sender: FDA-Public Use
  Company Number: ES-TEVA-2017-ES-836314

PATIENT
  Age: 89 Year
  Sex: Female

DRUGS (4)
  1. OMEPRAZOLE. [Interacting]
     Active Substance: OMEPRAZOLE
     Indication: PROPHYLAXIS AGAINST GASTROINTESTINAL ULCER
     Dosage: 20 MILLIGRAM DAILY;
     Route: 048
     Dates: start: 2017
  2. QUETIAPINE. [Suspect]
     Active Substance: QUETIAPINE
     Indication: MIXED DEMENTIA
     Dosage: 100 MILLIGRAM DAILY;
     Route: 048
     Dates: start: 201704
  3. DIFLUCAN [Interacting]
     Active Substance: FLUCONAZOLE
     Indication: ORAL CANDIDIASIS
     Dosage: 2.5 ML DAILY;
     Route: 048
     Dates: start: 201704
  4. TRANGOREX 200 MG COMPRIMIDOS [Interacting]
     Active Substance: AMIODARONE HYDROCHLORIDE
     Indication: ARRHYTHMIA
     Dosage: 100 MILLIGRAM DAILY; 100 MG 1X/DAY EXCEPT THURSDAYS AND SUNDAYS
     Route: 048
     Dates: start: 2017

REACTIONS (2)
  - Cardiac failure [Fatal]
  - Drug interaction [Fatal]

NARRATIVE: CASE EVENT DATE: 201705
